FAERS Safety Report 21237571 (Version 2)
Quarter: 2022Q3

REPORT INFORMATION
  Report Type: Spontaneous
  Country: BR (occurrence: BR)
  Receive Date: 20220822
  Receipt Date: 20220905
  Transmission Date: 20221027
  Serious: Yes (Death, Hospitalization, Other)
  Sender: FDA-Public Use
  Company Number: BR-SA-SAC20220819000421

PATIENT
  Age: 34 Year
  Sex: Male

DRUGS (4)
  1. FABRAZYME [Suspect]
     Active Substance: AGALSIDASE BETA
     Indication: Fabry^s disease
     Dosage: 4 VIALS EVERY 2 WEEKS
     Route: 065
     Dates: start: 20150202
  2. CALCIUM [Concomitant]
     Active Substance: CALCIUM
     Indication: Renal disorder
  3. VITAMIN D NOS [Concomitant]
     Active Substance: VITAMIN D NOS
     Indication: Renal disorder
  4. VITAMIN C [Concomitant]
     Active Substance: ASCORBIC ACID
     Indication: Renal disorder

REACTIONS (5)
  - Endocarditis [Fatal]
  - Condition aggravated [Fatal]
  - Pneumonia [Unknown]
  - COVID-19 [Unknown]
  - Nasopharyngitis [Unknown]

NARRATIVE: CASE EVENT DATE: 20200101
